FAERS Safety Report 6214050-6 (Version None)
Quarter: 2009Q2

REPORT INFORMATION
  Report Type: 
  Country: None (occurrence: None)
  Receive Date: 20090604
  Receipt Date: 20090525
  Transmission Date: 20091009
  Serious: Yes (Hospitalization)
  Sender: FDA-Public Use
  Company Number: JP-JNJFOC-20090302557

PATIENT
  Age: 10 Year
  Sex: Female

DRUGS (14)
  1. TOPINA [Suspect]
     Route: 048
  2. TOPINA [Suspect]
     Route: 048
  3. TOPINA [Suspect]
     Route: 048
  4. TOPINA [Suspect]
     Route: 048
  5. TOPINA [Suspect]
     Dosage: UNSPECIFIED DOSEG 3 TIMES DAILY FOR 400 MG PER DAY
     Route: 048
  6. TOPINA [Suspect]
     Route: 048
  7. TOPINA [Suspect]
     Route: 048
  8. TOPINA [Suspect]
     Route: 048
  9. TOPINA [Suspect]
     Indication: COMPLEX PARTIAL SEIZURES
     Route: 048
  10. TEGRETOL [Concomitant]
     Route: 048
  11. TEGRETOL [Concomitant]
     Indication: COMPLEX PARTIAL SEIZURES
     Route: 048
  12. MYSTAN [Concomitant]
     Route: 048
  13. MYSTAN [Concomitant]
     Indication: COMPLEX PARTIAL SEIZURES
     Route: 048
  14. LANDSEN [Concomitant]
     Indication: COMPLEX PARTIAL SEIZURES
     Route: 048

REACTIONS (5)
  - ADVERSE DRUG REACTION [None]
  - ANTICONVULSANT DRUG LEVEL INCREASED [None]
  - EPILEPSY [None]
  - PARALYSIS [None]
  - SPEECH DISORDER [None]
